FAERS Safety Report 7540117-6 (Version None)
Quarter: 2011Q2

REPORT INFORMATION
  Report Type: 
  Country: None (occurrence: None)
  Receive Date: 20110603
  Receipt Date: 20110531
  Transmission Date: 20111010
  Serious: Yes (Hospitalization, Other)
  Sender: FDA-Public Use
  Company Number: DSU-2011-03985

PATIENT
  Age: 75 Year
  Sex: Female

DRUGS (1)
  1. EVOXAC [Suspect]
     Indication: PRODUCT USED FOR UNKNOWN INDICATION
     Dosage: 60 MG (30 MG, BID), PER ORAL
     Route: 048

REACTIONS (2)
  - CERVICAL VERTEBRAL FRACTURE [None]
  - SKULL FRACTURE [None]
